FAERS Safety Report 17161004 (Version 1)
Quarter: 2019Q4

REPORT INFORMATION
  Report Type: Report from Study
  Country: US (occurrence: US)
  Receive Date: 20191216
  Receipt Date: 20191216
  Transmission Date: 20200122
  Serious: No
  Sender: FDA-Public Use
  Company Number: NVSC2019US002148

PATIENT
  Sex: Female

DRUGS (1)
  1. COSENTYX [Suspect]
     Active Substance: SECUKINUMAB
     Indication: PSORIASIS
     Dosage: 300 MG, QMO (Q4W) (BATCH NUMBER WAS NOT REPORTED)
     Route: 065
     Dates: start: 20181120

REACTIONS (1)
  - Impetigo [Unknown]

NARRATIVE: CASE EVENT DATE: 201907
